FAERS Safety Report 15681986 (Version 5)
Quarter: 2020Q1

REPORT INFORMATION
  Report Type: Report from Study
  Country: US (occurrence: US)
  Receive Date: 20181203
  Receipt Date: 20200205
  Transmission Date: 20200409
  Serious: Yes (Death, Hospitalization, Other)
  Sender: FDA-Public Use
  Company Number: US-TAKEDA-2018TUS034050

PATIENT
  Age: 49 Year
  Sex: Male
  Weight: 54 kg

DRUGS (2)
  1. PONATINIB [Suspect]
     Active Substance: PONATINIB
     Dosage: 30 MILLIGRAM, QD
     Route: 048
     Dates: end: 201908
  2. PONATINIB [Suspect]
     Active Substance: PONATINIB
     Indication: CHRONIC MYELOID LEUKAEMIA
     Dosage: 45 MILLIGRAM, QD
     Route: 048
     Dates: start: 2016, end: 201811

REACTIONS (6)
  - White blood cell count increased [Unknown]
  - Malaise [Unknown]
  - Therapy cessation [Unknown]
  - Fall [None]
  - Product dose omission [Unknown]
  - Head injury [Fatal]

NARRATIVE: CASE EVENT DATE: 201811
